FAERS Safety Report 13385888 (Version 2)
Quarter: 2017Q1

REPORT INFORMATION
  Report Type: Spontaneous
  Country: US (occurrence: US)
  Receive Date: 20170330
  Receipt Date: 20170330
  Transmission Date: 20170429
  Serious: Yes (Hospitalization, Other)
  Sender: FDA-Public Use
  Company Number: US-IMPAX LABORATORIES, INC-2017-IPXL-00737

PATIENT
  Sex: Female

DRUGS (24)
  1. PROPRANOLOL HYDROCHLORIDE IR [Suspect]
     Active Substance: PROPRANOLOL HYDROCHLORIDE
     Indication: TORSADE DE POINTES
     Dosage: UNK
     Route: 065
  2. DILTIAZEM. [Concomitant]
     Active Substance: DILTIAZEM
     Dosage: 3 MG/KG/DAY, EVERY 6 HR
     Route: 065
  3. RANOLAZINE [Interacting]
     Active Substance: RANOLAZINE
     Dosage: 12 MG/KG/DAY, EVERY 6 HOURS
     Route: 065
  4. RANOLAZINE [Interacting]
     Active Substance: RANOLAZINE
     Indication: TORSADE DE POINTES
     Dosage: 2-25 MG/KG/DAY, EVERY 12 HOURS
     Route: 065
  5. RANOLAZINE [Interacting]
     Active Substance: RANOLAZINE
     Dosage: 70 MG/KG/DAY, EVERY 6HR
     Route: 065
  6. RANOLAZINE [Interacting]
     Active Substance: RANOLAZINE
     Dosage: 60 MG/KG/DAY, EVERY 6 HOURS
     Route: 065
  7. ISOPROTERENOL [Concomitant]
     Active Substance: ISOPROTERENOL
     Indication: TORSADE DE POINTES
     Dosage: UNK
     Route: 065
  8. PHENYTOIN CHEWABLE [Interacting]
     Active Substance: PHENYTOIN
     Dosage: 4 MG/KG/DOSE, EVERY 8HR
     Route: 065
  9. RANOLAZINE [Interacting]
     Active Substance: RANOLAZINE
     Dosage: 80 MG/KG/DAY, EVERY 6HR
     Route: 065
  10. MEXILETINE [Concomitant]
     Active Substance: MEXILETINE
     Indication: TORSADE DE POINTES
     Dosage: UNK
     Route: 065
  11. RANOLAZINE [Interacting]
     Active Substance: RANOLAZINE
     Dosage: 60 MG/KG/DAY, EVERY 6HR
     Route: 065
  12. RANOLAZINE [Interacting]
     Active Substance: RANOLAZINE
     Dosage: 88 MG/KG/DAY, EVERY 6HR
     Route: 065
  13. MEXILETINE [Concomitant]
     Active Substance: MEXILETINE
     Dosage: 30 MG/KG/DAY, EVERY 8HR
     Route: 065
  14. FLECAINIDE [Concomitant]
     Active Substance: FLECAINIDE
     Indication: TORSADE DE POINTES
     Dosage: UNK
     Route: 065
  15. VERAPAMIL [Concomitant]
     Active Substance: VERAPAMIL HYDROCHLORIDE
     Indication: PRODUCT USED FOR UNKNOWN INDICATION
     Dosage: 4 MG/KG/DAY DIVIDED OVER EVERY 8 HOUR
     Route: 065
  16. DILTIAZEM. [Concomitant]
     Active Substance: DILTIAZEM
     Indication: PRODUCT USED FOR UNKNOWN INDICATION
     Dosage: 3 MG/KG/DAY, EVERY 8 HR
     Route: 065
  17. PROPRANOLOL HYDROCHLORIDE IR [Suspect]
     Active Substance: PROPRANOLOL HYDROCHLORIDE
     Dosage: 1 MG/KG/DOSE, EVERY 8 HOURS
     Route: 065
  18. PHENYTOIN CHEWABLE [Suspect]
     Active Substance: PHENYTOIN
     Indication: ARRHYTHMIA
     Dosage: 12 MG/KG/DAY, EVERY 8 HOURS
     Route: 065
  19. RANOLAZINE [Interacting]
     Active Substance: RANOLAZINE
     Dosage: 12 MG/KG/DAY, EVERY 12 HOURS
     Route: 065
  20. PROPRANOLOL HYDROCHLORIDE IR [Suspect]
     Active Substance: PROPRANOLOL HYDROCHLORIDE
     Dosage: 3 MG/KG/DAY, EVERY 6 HOURS
     Route: 065
  21. RANOLAZINE [Interacting]
     Active Substance: RANOLAZINE
     Dosage: 50 MG/KG/DAY, EVERY 6 HOURS
     Route: 065
  22. MAGNESIUM [Concomitant]
     Active Substance: MAGNESIUM
     Indication: TORSADE DE POINTES
     Dosage: UNK
     Route: 065
  23. MEXILETINE [Concomitant]
     Active Substance: MEXILETINE
     Dosage: 10 MG/KG/DOSE EVERY 8 HOURS
     Route: 065
  24. FLECAINIDE [Concomitant]
     Active Substance: FLECAINIDE
     Dosage: DOSE INCREASED, UNK
     Route: 065

REACTIONS (5)
  - Drug interaction [Unknown]
  - Off label use [Unknown]
  - Atrioventricular block [Unknown]
  - Seizure [Recovered/Resolved]
  - Drug ineffective for unapproved indication [Unknown]
